FAERS Safety Report 8485942-2 (Version None)
Quarter: 2012Q3

REPORT INFORMATION
  Report Type: 
  Country: None (occurrence: None)
  Receive Date: 20120703
  Receipt Date: 20120623
  Transmission Date: 20120928
  Serious: Yes (Hospitalization)
  Sender: FDA-Public Use
  Company Number: US-BRISTOL-MYERS SQUIBB COMPANY-16688798

PATIENT
  Age: 63 Year
  Sex: Male
  Weight: 60 kg

DRUGS (1)
  1. YERVOY [Suspect]
     Indication: MALIGNANT MELANOMA
     Dosage: LAST ADMIN DT 7MAY12; REMOVED FROM THE PROTOCOL ON 13-JUN-2012.
     Route: 042
     Dates: start: 20120409, end: 20120613

REACTIONS (3)
  - COLITIS [None]
  - ABDOMINAL PAIN [None]
  - DIARRHOEA [None]
